FAERS Safety Report 11923288 (Version 1)
Quarter: 2016Q1

REPORT INFORMATION
  Report Type: Spontaneous
  Country: US (occurrence: US)
  Receive Date: 20160118
  Receipt Date: 20160118
  Transmission Date: 20160526
  Serious: Yes (Hospitalization)
  Sender: FDA-Public Use
  Company Number: US-ROCHE-1645694

PATIENT
  Age: 78 Year
  Sex: Male
  Weight: 84.44 kg

DRUGS (2)
  1. FLOMAX [Suspect]
     Active Substance: TAMSULOSIN HYDROCHLORIDE
     Indication: PRODUCT USED FOR UNKNOWN INDICATION
     Route: 065
  2. ESBRIET [Suspect]
     Active Substance: PIRFENIDONE
     Indication: IDIOPATHIC PULMONARY FIBROSIS
     Dosage: 3 CAPSULES BY MOUTH THREE TIMES A DAY WITH FOOD.
     Route: 048
     Dates: start: 20141202

REACTIONS (7)
  - Productive cough [Unknown]
  - Throat irritation [Unknown]
  - Rash [Unknown]
  - Drug dose omission [Unknown]
  - Photosensitivity reaction [Unknown]
  - Syncope [Unknown]
  - Dizziness [Unknown]

NARRATIVE: CASE EVENT DATE: 20160107
